FAERS Safety Report 6863179-8 (Version None)
Quarter: 2010Q2

REPORT INFORMATION
  Report Type: 
  Country: None (occurrence: None)
  Receive Date: 20100528
  Receipt Date: 20100204
  Transmission Date: 20101027
  Serious: No
  Sender: FDA-Public Use
  Company Number: 007225

PATIENT
  Age: 37 Year
  Sex: Female

DRUGS (5)
  1. LACOSAMIDE [Suspect]
     Indication: EPILEPSY
     Dosage: 50 MG BID ORAL, 100 MG BID ORAL
     Route: 048
     Dates: start: 20100101, end: 20100101
  2. LACOSAMIDE [Suspect]
     Indication: EPILEPSY
     Dosage: 50 MG BID ORAL, 100 MG BID ORAL
     Route: 048
     Dates: start: 20100101, end: 20100101
  3. ATIVAN [Concomitant]
  4. XANAX [Concomitant]
  5. SEROQUEL [Concomitant]

REACTIONS (5)
  - BALANCE DISORDER [None]
  - CRYING [None]
  - DIZZINESS [None]
  - LOGORRHOEA [None]
  - PSYCHOMOTOR HYPERACTIVITY [None]
